FAERS Safety Report 5056842-5 (Version None)
Quarter: 2006Q3

REPORT INFORMATION
  Report Type: 
  Country: None (occurrence: None)
  Receive Date: 20060721
  Receipt Date: 20060627
  Transmission Date: 20061208
  Serious: Yes (Hospitalization)
  Sender: FDA-Public Use
  Company Number: PHEH2006US08334

PATIENT
  Age: 55 Year
  Sex: Female

DRUGS (2)
  1. DIOVAN HCT [Suspect]
     Indication: HYPERTENSION
     Dosage: 80MG VAL/12.5MG HCT, QD
     Dates: start: 20060531, end: 20060601
  2. DIOVAN HCT [Suspect]
     Dosage: 80MG VAL/12.5MG HCT, QD
     Dates: start: 20060601, end: 20060626

REACTIONS (9)
  - BLISTER [None]
  - CELLULITIS [None]
  - DIARRHOEA [None]
  - ERYTHEMA [None]
  - PYREXIA [None]
  - RASH MACULAR [None]
  - SKIN DISCOLOURATION [None]
  - SKIN REACTION [None]
  - VOMITING [None]
